FAERS Safety Report 16116915 (Version 6)
Quarter: 2021Q2

REPORT INFORMATION
  Report Type: Spontaneous
  Country: US (occurrence: US)
  Receive Date: 20190326
  Receipt Date: 20210511
  Transmission Date: 20210716
  Serious: Yes (Hospitalization)
  Sender: FDA-Public Use
  Company Number: US-PFIZER INC-2019122154

PATIENT
  Age: 65 Year
  Sex: Female
  Weight: 59 kg

DRUGS (11)
  1. CITALOPRAM [Concomitant]
     Active Substance: CITALOPRAM HYDROBROMIDE
     Indication: DEPRESSION
     Dosage: 20 MG, 1X/DAY (ONCE DAILY)
  2. LYRICA [Suspect]
     Active Substance: PREGABALIN
     Dosage: 300 MG, 2X/DAY
     Route: 048
  3. LEVOTHYROXINE. [Concomitant]
     Active Substance: LEVOTHYROXINE
     Indication: THYROID DISORDER
     Dosage: UNK UNK, DAILY
  4. LYRICA [Suspect]
     Active Substance: PREGABALIN
     Dosage: UNK
  5. LYRICA [Suspect]
     Active Substance: PREGABALIN
     Indication: FIBROMYALGIA
     Dosage: 75 MG, 2X/DAY
     Route: 048
     Dates: start: 2013
  6. LYRICA [Suspect]
     Active Substance: PREGABALIN
     Dosage: 150 MG, 2X/DAY
     Route: 048
  7. LYRICA [Suspect]
     Active Substance: PREGABALIN
     Dosage: UNK
  8. ROSUVASTATIN. [Concomitant]
     Active Substance: ROSUVASTATIN
     Indication: BLOOD CHOLESTEROL ABNORMAL
     Dosage: 5 MG, 1X/DAY
  9. ALENDRONATE [Concomitant]
     Active Substance: ALENDRONATE SODIUM
     Indication: OSTEOPOROSIS
     Dosage: 70 MG, WEEKLY (ONCE WEEK)
  10. LYRICA [Suspect]
     Active Substance: PREGABALIN
     Dosage: UNK
  11. LYRICA [Suspect]
     Active Substance: PREGABALIN
     Dosage: UNK

REACTIONS (7)
  - Dysstasia [Unknown]
  - Feeling abnormal [Unknown]
  - Neuralgia [Recovered/Resolved]
  - Drug ineffective [Unknown]
  - Insomnia [Recovered/Resolved]
  - Fatigue [Unknown]
  - Pain [Recovered/Resolved]
